FAERS Safety Report 6690995-8 (Version None)
Quarter: 2010Q2

REPORT INFORMATION
  Report Type: 
  Country: None (occurrence: None)
  Receive Date: 20100421
  Receipt Date: 20100412
  Transmission Date: 20101027
  Serious: Yes (Hospitalization, Other)
  Sender: FDA-Public Use
  Company Number: NL-AMGEN-QUU404745

PATIENT
  Age: 39 Year
  Sex: Female
  Weight: 72 kg

DRUGS (4)
  1. NPLATE [Suspect]
     Indication: IDIOPATHIC THROMBOCYTOPENIC PURPURA
     Dates: start: 20090501
  2. AZATHIOPRINE [Concomitant]
     Route: 048
     Dates: start: 20091111
  3. IMMU-G [Concomitant]
  4. TRANEXAMIC ACID [Concomitant]
     Dates: start: 20100310, end: 20100316

REACTIONS (2)
  - CEREBROVASCULAR ACCIDENT [None]
  - PLATELET COUNT ABNORMAL [None]
